FAERS Safety Report 5598433-3 (Version None)
Quarter: 2008Q1

REPORT INFORMATION
  Report Type: 
  Country: None (occurrence: None)
  Receive Date: 20080122
  Receipt Date: 20080115
  Transmission Date: 20080703
  Serious: Yes (Other)
  Sender: FDA-Public Use
  Company Number: US-ASTRAZENECA-2008UW01202

PATIENT
  Age: 60 Year
  Sex: Female
  Weight: 67.6 kg

DRUGS (12)
  1. ARIMIDEX [Suspect]
     Indication: BREAST CANCER STAGE I
     Route: 048
  2. AROMASIN [Suspect]
  3. FLONASE [Concomitant]
  4. CLARITIN [Concomitant]
  5. VITAMIN D [Concomitant]
  6. CALCIUM GLUCONATE [Concomitant]
  7. MAGNESIUM [Concomitant]
  8. ZINC [Concomitant]
  9. VITAMIN CAP [Concomitant]
  10. VITAMIN E [Concomitant]
  11. FLAXSEED OIL [Concomitant]
  12. FISH OIL [Concomitant]

REACTIONS (6)
  - ARRHYTHMIA [None]
  - ARTHROPATHY [None]
  - CHEST PAIN [None]
  - GASTRITIS [None]
  - JOINT CREPITATION [None]
  - PAIN [None]
